FAERS Safety Report 7424076-2 (Version None)
Quarter: 2011Q2

REPORT INFORMATION
  Report Type: 
  Country: None (occurrence: None)
  Receive Date: 20110419
  Receipt Date: 20110405
  Transmission Date: 20111010
  Serious: Yes (Hospitalization, Other)
  Sender: FDA-Public Use
  Company Number: CA-ELI_LILLY_AND_COMPANY-CA201104001189

PATIENT
  Sex: Male

DRUGS (13)
  1. DOXEPIN [Concomitant]
     Dosage: 10 MG, EACH EVENING
  2. TYLENOL WITH CODEIN #3 [Concomitant]
     Dosage: 1 UNK, UNK
  3. WELLBUTRIN [Concomitant]
     Dosage: 100 MG, UNK
  4. ORAP [Concomitant]
  5. ASPIRIN [Concomitant]
     Dosage: 500 MG, UNK
  6. LECTOPAM TAB [Concomitant]
     Dosage: 1 UNK, UNK
  7. ZYPREXA [Suspect]
     Dosage: 10 MG, UNK
  8. ZYPREXA [Suspect]
     Dosage: 20 MG, EACH EVENING
  9. ZYPREXA [Suspect]
     Indication: SCHIZOAFFECTIVE DISORDER
     Dosage: 5 MG, UNK
     Dates: start: 19970902
  10. ZYPREXA [Suspect]
     Dosage: 30 MG, UNK
  11. ZYPREXA ZYDIS [Suspect]
     Indication: SCHIZOAFFECTIVE DISORDER
     Dosage: 1 UNK, UNK
     Dates: start: 20030408
  12. ATIVAN [Concomitant]
     Dosage: 1 UNK, UNK
     Route: 060
  13. SEROQUEL [Concomitant]
     Dosage: 100 MG, UNK

REACTIONS (15)
  - URINARY TRACT INFECTION [None]
  - NEUROPATHY PERIPHERAL [None]
  - DIABETES MELLITUS [None]
  - HEPATIC STEATOSIS [None]
  - LOSS OF CONSCIOUSNESS [None]
  - WEIGHT INCREASED [None]
  - CORONARY ARTERY DISEASE [None]
  - POLYCYTHAEMIA VERA [None]
  - HYPERLIPIDAEMIA [None]
  - ERECTILE DYSFUNCTION [None]
  - ANAEMIA [None]
  - HEPATOSPLENOMEGALY [None]
  - HAEMATEMESIS [None]
  - SEPSIS [None]
  - OVERDOSE [None]
